FAERS Safety Report 6696896-3 (Version None)
Quarter: 2010Q2

REPORT INFORMATION
  Report Type: 
  Country: None (occurrence: None)
  Receive Date: 20100426
  Receipt Date: 20100413
  Transmission Date: 20101027
  Serious: Yes (Hospitalization, Other)
  Sender: FDA-Public Use
  Company Number: PHHY2010BR23176

PATIENT
  Sex: Female

DRUGS (13)
  1. EXFORGE [Suspect]
     Dosage: 160/5 MG
     Route: 048
     Dates: start: 20060101
  2. EXFORGE [Suspect]
     Dosage: 160/5 MG HALF TABLET A DAY
     Route: 048
  3. EXFORGE [Suspect]
     Dosage: 160/5 MG
     Route: 048
  4. DIOVAN [Suspect]
     Dosage: 160 MG (1 TABLET DAILY)
     Route: 048
  5. OLCADIL [Suspect]
     Dosage: 2 MG
  6. SUSTRATE [Concomitant]
     Indication: CARDIAC DISORDER
     Dosage: 10 MG (1 TABLET A DAY)
     Route: 048
     Dates: start: 19950101
  7. PROPAFENONE HCL [Concomitant]
     Indication: ARRHYTHMIA
     Dosage: 300 MG (1 TABLET A DAY)
     Route: 048
     Dates: start: 19950101
  8. VERAPAMIL [Concomitant]
     Indication: ARRHYTHMIA
     Dosage: 80 MG (1 TABLET A DAY)
     Route: 048
     Dates: start: 19950101
  9. SIMVASTATIN [Concomitant]
     Indication: BLOOD CHOLESTEROL INCREASED
     Dosage: 20 MG (1 TABLET A DAY)
     Route: 048
     Dates: start: 19950101
  10. OMEPRAZOLE [Concomitant]
     Indication: GASTRITIS
     Dosage: 20 MG (1 TABLET A DAY)
     Route: 048
     Dates: start: 20000101
  11. CALCIUM CARBONATE/COLECALCIFEROL [Concomitant]
     Indication: OSTEOPOROSIS
     Dosage: 1 TABLET A DAY
     Route: 048
     Dates: start: 20000101
  12. ALENDRONATE SODIUM [Concomitant]
     Indication: OSTEOPOROSIS
     Dosage: 1TABLET A DAY
     Route: 048
     Dates: start: 20000101
  13. ADEROGYL [Concomitant]
     Indication: OSTEOPOROSIS
     Dosage: UNK
     Route: 048
     Dates: start: 20000101

REACTIONS (9)
  - AORTIC ANEURYSM [None]
  - BLOOD PRESSURE DECREASED [None]
  - CHOLELITHOTOMY [None]
  - DIZZINESS [None]
  - HYPERHIDROSIS [None]
  - NEPHROLITHIASIS [None]
  - RENAL COLIC [None]
  - SYNCOPE [None]
  - WRONG TECHNIQUE IN DRUG USAGE PROCESS [None]
